FAERS Safety Report 16122084 (Version 1)
Quarter: 2019Q1

REPORT INFORMATION
  Report Type: Spontaneous
  Country: US (occurrence: US)
  Receive Date: 20190327
  Receipt Date: 20190327
  Transmission Date: 20190418
  Serious: No
  Sender: FDA-Public Use
  Company Number: US-PFIZER INC-2019124410

PATIENT
  Age: 83 Year
  Sex: Male
  Weight: 73.14 kg

DRUGS (2)
  1. FLECTOR [Suspect]
     Active Substance: DICLOFENAC EPOLAMINE
     Dosage: UNK, 3X/DAY (FLECTOR PATCH, 1.30 % 3 TIMES A DAY )
  2. FLECTOR [Suspect]
     Active Substance: DICLOFENAC EPOLAMINE
     Indication: PAIN
     Dosage: UNK, DAILY(1.30 % . 3-3 PATCHES DAILY TO JOINT. )
     Dates: start: 20190220

REACTIONS (2)
  - Drug ineffective [Unknown]
  - Off label use [Unknown]
